FAERS Safety Report 8618861-9 (Version None)
Quarter: 2012Q3

REPORT INFORMATION
  Report Type: 
  Country: None (occurrence: None)
  Receive Date: 20120816
  Receipt Date: 20120816
  Transmission Date: 20120928
  Serious: Yes (Life-Threatening, Hospitalization)
  Sender: FDA-Public Use
  Company Number: None

PATIENT
  Age: 53 Year
  Sex: Female
  Weight: 62.5964 kg

DRUGS (1)
  1. ZOMIG [Suspect]
     Indication: MIGRAINE
     Dosage: 5MG WHEN NEEDED PO
     Route: 048
     Dates: start: 20120807, end: 20120807

REACTIONS (12)
  - MUSCLE TIGHTNESS [None]
  - HEADACHE [None]
  - ECONOMIC PROBLEM [None]
  - PAIN IN EXTREMITY [None]
  - VERTIGO [None]
  - PARAESTHESIA [None]
  - ELECTROCARDIOGRAM CHANGE [None]
  - ASTHENIA [None]
  - CHEST DISCOMFORT [None]
  - MUSCULAR WEAKNESS [None]
  - UNEVALUABLE EVENT [None]
  - BALANCE DISORDER [None]
